FAERS Safety Report 10599166 (Version 2)
Quarter: 2014Q4

REPORT INFORMATION
  Report Type: Other
  Country: ES (occurrence: ES)
  Receive Date: 20141121
  Receipt Date: 20141121
  Transmission Date: 20150529
  Serious: Yes (Life-Threatening)
  Sender: FDA-Public Use
  Company Number: ES-BRACCO-000986

PATIENT
  Age: 65 Year
  Sex: Male
  Weight: 87 kg

DRUGS (7)
  1. AMLODIPINE [Concomitant]
     Active Substance: AMLODIPINE BESYLATE
  2. METFORMIN [Concomitant]
     Active Substance: METFORMIN HYDROCHLORIDE
  3. SONOVUE [Suspect]
     Active Substance: SULFUR HEXAFLUORIDE
     Indication: STRESS ECHOCARDIOGRAM
     Route: 042
     Dates: start: 20140904, end: 20140904
  4. OMEPRAZOLE. [Concomitant]
     Active Substance: OMEPRAZOLE
  5. INSULIN [Concomitant]
     Active Substance: INSULIN NOS
  6. SIMVASTATINA [Concomitant]
     Active Substance: SIMVASTATIN
  7. ADIRO [Concomitant]
     Active Substance: ASPIRIN

REACTIONS (5)
  - Feeling hot [Recovered/Resolved]
  - Back pain [Recovered/Resolved]
  - Flushing [Recovered/Resolved]
  - Hypertensive crisis [Recovered/Resolved]
  - Ventricular extrasystoles [Recovered/Resolved]

NARRATIVE: CASE EVENT DATE: 20140904
